FAERS Safety Report 18519785 (Version 2)
Quarter: 2020Q4

REPORT INFORMATION
  Report Type: Report from Study
  Country: CO (occurrence: CO)
  Receive Date: 20201118
  Receipt Date: 20201203
  Transmission Date: 20210114
  Serious: Yes (Life-Threatening)
  Sender: FDA-Public Use
  Company Number: CO-TAKEDA-CO201935207

PATIENT
  Age: 40 Year
  Sex: Female
  Weight: 74 kg

DRUGS (20)
  1. ICATIBANT [Suspect]
     Active Substance: ICATIBANT ACETATE
     Dosage: 30 MILLIGRAM, EVERY 6 HOURS IN EPISODES MAXIMUM OF 3 IN 24 HOURS
     Route: 058
     Dates: start: 20200313, end: 20200313
  2. ICATIBANT [Suspect]
     Active Substance: ICATIBANT ACETATE
     Dosage: 30 MILLIGRAM, OTHER (FIRST 72 HOURS OF EVOLUTION)
     Route: 058
     Dates: start: 20200819, end: 20200822
  3. ICATIBANT [Suspect]
     Active Substance: ICATIBANT ACETATE
     Dosage: 30 MILLIGRAM, EVERY 6 HOURS IN EPISODES MAXIMUM OF 3 IN 24 HOURS
     Route: 058
     Dates: start: 20200606, end: 20200606
  4. ICATIBANT [Suspect]
     Active Substance: ICATIBANT ACETATE
     Dosage: 30 MILLIGRAM, OTHER (FIRST 72 HOURS OF EVOLUTION)
     Route: 058
     Dates: start: 20200819, end: 20200822
  5. ICATIBANT [Suspect]
     Active Substance: ICATIBANT ACETATE
     Dosage: 30 MILLIGRAM, EVERY 6 HOURS IN EPISODES MAXIMUM OF 3 IN 24 HOURS
     Route: 058
     Dates: start: 20200113, end: 20200113
  6. ICATIBANT [Suspect]
     Active Substance: ICATIBANT ACETATE
     Dosage: 30 MILLIGRAM, OTHER (FIRST 72 HOURS OF EVOLUTION)
     Route: 058
     Dates: start: 20200916, end: 20200917
  7. ICATIBANT [Suspect]
     Active Substance: ICATIBANT ACETATE
     Dosage: 30 MILLIGRAM, OTHER (FIRST 72 HOURS OF EVOLUTION)
     Route: 058
     Dates: start: 20201009, end: 20201009
  8. ICATIBANT [Suspect]
     Active Substance: ICATIBANT ACETATE
     Dosage: 30 MILLIGRAM, EVERY 6 HOURS IN EPISODES MAXIMUM OF 3 IN 24 HOURS
     Route: 058
     Dates: start: 20191203
  9. ICATIBANT [Suspect]
     Active Substance: ICATIBANT ACETATE
     Dosage: 30 MILLIGRAM, EVERY 6 HOURS IN EPISODES MAXIMUM OF 3 IN 24 HOURS
     Route: 058
     Dates: start: 20200113, end: 20200113
  10. ICATIBANT [Suspect]
     Active Substance: ICATIBANT ACETATE
     Dosage: 30 MILLIGRAM, OTHER (FIRST 72 HOURS OF EVOLUTION)
     Route: 058
     Dates: start: 20201009, end: 20201009
  11. ICATIBANT [Suspect]
     Active Substance: ICATIBANT ACETATE
     Indication: HEREDITARY ANGIOEDEMA
     Dosage: 30 MILLIGRAM, EVERY 6 HOURS IN EPISODES MAXIMUM OF 3 IN 24 HOURS
     Route: 058
  12. ICATIBANT [Suspect]
     Active Substance: ICATIBANT ACETATE
     Dosage: 30 MILLIGRAM, EVERY 6 HOURS IN EPISODES MAXIMUM OF 3 IN 24 HOURS
     Route: 058
     Dates: start: 20191203
  13. ICATIBANT [Suspect]
     Active Substance: ICATIBANT ACETATE
     Dosage: 30 MILLIGRAM, EVERY 6 HOURS IN EPISODES MAXIMUM OF 3 IN 24 HOURS
     Route: 058
     Dates: start: 20200313, end: 20200313
  14. ICATIBANT [Suspect]
     Active Substance: ICATIBANT ACETATE
     Dosage: 30 MILLIGRAM, EVERY 6 HOURS IN EPISODES MAXIMUM OF 3 IN 24 HOURS
     Route: 058
     Dates: start: 20200420, end: 20200420
  15. ICATIBANT [Suspect]
     Active Substance: ICATIBANT ACETATE
     Dosage: 30 MILLIGRAM, EVERY 6 HOURS IN EPISODES MAXIMUM OF 3 IN 24 HOURS
     Route: 058
     Dates: start: 20200606, end: 20200606
  16. ICATIBANT [Suspect]
     Active Substance: ICATIBANT ACETATE
     Dosage: 30 MILLIGRAM, EVERY 6 HOURS IN EPISODES MAXIMUM OF 3 IN 24 HOURS
     Route: 058
     Dates: start: 20200606, end: 20200606
  17. ICATIBANT [Suspect]
     Active Substance: ICATIBANT ACETATE
     Dosage: 30 MILLIGRAM, OTHER (FIRST 72 HOURS OF EVOLUTION)
     Route: 058
     Dates: start: 20200916, end: 20200917
  18. ICATIBANT [Suspect]
     Active Substance: ICATIBANT ACETATE
     Dosage: 30 MILLIGRAM, EVERY 6 HOURS IN EPISODES MAXIMUM OF 3 IN 24 HOURS
     Route: 058
     Dates: start: 20200606, end: 20200606
  19. ICATIBANT [Suspect]
     Active Substance: ICATIBANT ACETATE
     Indication: HEREDITARY ANGIOEDEMA
     Dosage: 30 MILLIGRAM, EVERY 6 HOURS IN EPISODES MAXIMUM OF 3 IN 24 HOURS
     Route: 058
  20. ICATIBANT [Suspect]
     Active Substance: ICATIBANT ACETATE
     Dosage: 30 MILLIGRAM, EVERY 6 HOURS IN EPISODES MAXIMUM OF 3 IN 24 HOURS
     Route: 058
     Dates: start: 20200420, end: 20200420

REACTIONS (1)
  - Hereditary angioedema [Recovered/Resolved]

NARRATIVE: CASE EVENT DATE: 20200520
